FAERS Safety Report 20766738 (Version 1)
Quarter: 2022Q2

REPORT INFORMATION
  Report Type: Spontaneous
  Country: NL (occurrence: NL)
  Receive Date: 20220429
  Receipt Date: 20220429
  Transmission Date: 20220720
  Serious: Yes (Hospitalization, Other)
  Sender: FDA-Public Use
  Company Number: None

PATIENT
  Sex: Female
  Weight: 66 kg

DRUGS (17)
  1. METHOTREXATE [Suspect]
     Active Substance: METHOTREXATE
     Indication: Psoriasis
     Dosage: 1 X PER WEEK 10 MILLIGRAM ,  METHOTREXAAT INJVLST  50MG/ML / BRAND NAME NOT SPECIFIED,
     Dates: start: 20220301, end: 20220308
  2. MACROGOL/SALTS [Concomitant]
     Dosage: DRINK , MACROGOL/SALTS DRANK / BRAND NAME NOT SPECIFIED , THERAPY START DATE AND END DATE : ASKU
  3. CLOBETASOL [Concomitant]
     Active Substance: CLOBETASOL
     Dosage: 0,5 MG/G (MILLIGRAM PER GRAM) , BRAND NAME NOT SPECIFIED , STRENGTH : 0.5 MG/G, THERAPY START DATE A
  4. FUROSEMIDE [Concomitant]
     Active Substance: FUROSEMIDE
     Dosage: 40 MG (MILLIGRAM) , BRAND NAME NOT SPECIFIED, STRENGTH : 40 MG , THERAPY START DATE AND END DATE :
  5. ACETAMINOPHEN [Concomitant]
     Active Substance: ACETAMINOPHEN
     Dosage: 500 MG (MILLIGRAM) , BRAND NAME NOT SPECIFIED, THERAPY START DATE AND END DATE : ASKU , STRENGTH : 5
  6. PRAVASTATIN [Concomitant]
     Active Substance: PRAVASTATIN
     Dosage: 20 MG (MILLIGRAM) , BRAND NAME NOT SPECIFIED, THERAPY START DATE AND END DATE : ASKU , STRENGTH : 20
  7. VASELINE/PARAFFINE [Concomitant]
     Dosage: 500/500 MG/G (MILLIGRAM PER GRAM) , BRAND NAME NOT SPECIFIED , THERAPY START DATE AND END DATE : ASK
  8. BETAMETHASON/CALCIPOTRIOL [Concomitant]
     Dosage: 0.5 MG (MILLIGRAM)/50 UG/G (MICROGRAM PER GRAM) , BRAND NAME NOT SPECIFIED , THERAPY START DATE AND
  9. BETAMETHASONE [Concomitant]
     Active Substance: BETAMETHASONE
     Dosage: SOLUTION, 1 MG/ML (MILLIGRAM PER MILLILITER) , BRAND NAME NOT SPECIFIED , THERAPY START DATE AND END
  10. APIXABAN [Concomitant]
     Active Substance: APIXABAN
     Dosage: 2.5 MG (MILLIGRAM), BRAND NAME NOT SPECIFIED , THERAPY START DATE AND END DATE : ASKU , STRENGTH : 2
  11. COSMETICS [Concomitant]
     Active Substance: COSMETICS
     Dosage: BRAND NAME NOT SPECIFIED , THERAPY START DATE AND END DATE : ASKU
  12. VASELINECETOMACROGOL [Concomitant]
     Dosage: BRAND NAME NOT SPECIFIED , THERAPY START DATE AND END DATE : ASKU
  13. METOPROLOL SUCCINATE [Concomitant]
     Active Substance: METOPROLOL SUCCINATE
     Dosage: 50 MG (MILLIGRAM),  METOPROLOL TABLET MGA  50MG (SUCCINAAT) / BRAND NAME NOT SPECIFIED , THERAPY STA
  14. AMLODIPINE [Concomitant]
     Active Substance: AMLODIPINE BESYLATE
     Dosage: 10 MG (MILLIGRAM), BRAND NAME NOT SPECIFIED , THERAPY START DATE AND END DATE : ASKU , STRENGTH : 10
  15. FENOTEROL\IPRATROPIUM [Concomitant]
     Active Substance: FENOTEROL\IPRATROPIUM
     Dosage: AEROSOL, 50/20 UG/DOSE (MICROGRAMS PER DOSE), BRAND NAME NOT SPECIFIED , THERAPY START DATE AND END
  16. TIOTROPIUM [Concomitant]
     Active Substance: TIOTROPIUM
     Dosage: 18 UG (MICROGRAM) , TIOTROPIUM INHALATIECAPSULE 18UG / BRAND NAME NOT SPECIFIED, THERAPY START DATE
  17. DESLORATADINE [Concomitant]
     Active Substance: DESLORATADINE
     Dosage: MELTING TABLET , 5 MG (MILLIGRAM), BRAND NAME NOT SPECIFIED , STRENGTH : 5 MG , THERAPY START DATE A

REACTIONS (2)
  - Pancytopenia [Unknown]
  - Epidermal necrosis [Recovering/Resolving]
